FAERS Safety Report 23933877 (Version 1)
Quarter: 2024Q2

REPORT INFORMATION
  Report Type: Spontaneous
  Country: IT (occurrence: IT)
  Receive Date: 20240603
  Receipt Date: 20240603
  Transmission Date: 20240716
  Serious: Yes (Hospitalization)
  Sender: FDA-Public Use
  Company Number: IT-BIOGEN-2024BI01266050

PATIENT
  Sex: Male

DRUGS (1)
  1. TOFERSEN [Suspect]
     Active Substance: TOFERSEN
     Indication: Amyotrophic lateral sclerosis
     Route: 050
     Dates: start: 202301

REACTIONS (4)
  - Conjunctival hyperaemia [Not Recovered/Not Resolved]
  - Visual acuity reduced [Unknown]
  - Intracranial pressure increased [Unknown]
  - Papilloedema [Unknown]
